FAERS Safety Report 19485617 (Version 3)
Quarter: 2021Q3

REPORT INFORMATION
  Report Type: Spontaneous
  Country: JP (occurrence: JP)
  Receive Date: 20210702
  Receipt Date: 20210803
  Transmission Date: 20211014
  Serious: Yes (Death, Other)
  Sender: FDA-Public Use
  Company Number: NVSJ2021JP009903

PATIENT
  Age: 2 Day
  Sex: Female
  Weight: 4.22 kg

DRUGS (2)
  1. AFINITOR DISPERZ [Suspect]
     Active Substance: EVEROLIMUS
     Indication: RHABDOMYOMA
     Dosage: 0.125 MG
     Route: 048
  2. AFINITOR DISPERZ [Suspect]
     Active Substance: EVEROLIMUS
     Dosage: 0.1 MG
     Route: 048

REACTIONS (9)
  - Arrhythmia [Fatal]
  - Neoplasm progression [Fatal]
  - Respiratory distress [Recovering/Resolving]
  - Off label use [Unknown]
  - Concomitant disease aggravated [Unknown]
  - Patent ductus arteriosus [Unknown]
  - Poor feeding infant [Recovering/Resolving]
  - Ventricular fibrillation [Fatal]
  - Rhabdomyoma [Fatal]
